FAERS Safety Report 23859670 (Version 1)
Quarter: 2024Q2

REPORT INFORMATION
  Report Type: Spontaneous
  Country: US (occurrence: US)
  Receive Date: 20240515
  Receipt Date: 20240515
  Transmission Date: 20240716
  Serious: No
  Sender: FDA-Public Use
  Company Number: US-MYLANLABS-2024M1040307

PATIENT

DRUGS (1)
  1. LISDEXAMFETAMINE DIMESYLATE [Suspect]
     Active Substance: LISDEXAMFETAMINE DIMESYLATE
     Indication: Product used for unknown indication
     Dosage: 40 MILLIGRAM (TITRATED THE DOSE TO 20 TO 30 MILLIGRAMS IN WATER)
     Route: 065

REACTIONS (5)
  - Blood pressure decreased [Unknown]
  - Brain fog [Unknown]
  - Headache [Unknown]
  - Drug effect less than expected [Unknown]
  - Product substitution issue [Unknown]
